FAERS Safety Report 25132130 (Version 1)
Quarter: 2025Q1

REPORT INFORMATION
  Report Type: Spontaneous
  Country: US (occurrence: None)
  Receive Date: 20250328
  Receipt Date: 20250328
  Transmission Date: 20250408
  Serious: No
  Sender: AXSOME THERAPEUTICS, INC.
  Company Number: US-ARIS GLOBAL-AXS202404-000454

PATIENT
  Age: 57 Year
  Sex: Male
  Weight: 71.2 kg

DRUGS (1)
  1. SUNOSI [Suspect]
     Active Substance: SOLRIAMFETOL
     Indication: Obstructive sleep apnoea syndrome
     Route: 065

REACTIONS (3)
  - Dizziness [Unknown]
  - Product use issue [Unknown]
  - Therapy interrupted [Unknown]
